FAERS Safety Report 21075283 (Version 1)
Quarter: 2022Q3

REPORT INFORMATION
  Report Type: Spontaneous
  Country: US (occurrence: None)
  Receive Date: 20220712
  Receipt Date: 20220712
  Transmission Date: 20221026
  Serious: No
  Sender: FDA-Public Use
  Company Number: None

PATIENT
  Sex: Female

DRUGS (1)
  1. STELARA [Suspect]
     Active Substance: USTEKINUMAB
     Indication: Crohn^s disease
     Dosage: 90MG  EVERY 6 WEEKS UNDER THE SKIN?
     Route: 058
     Dates: start: 20220105

REACTIONS (2)
  - Gastric operation [None]
  - Therapy interrupted [None]
